FAERS Safety Report 21636143 (Version 1)
Quarter: 2022Q4

REPORT INFORMATION
  Report Type: Report from Study
  Country: US (occurrence: None)
  Receive Date: 20221123
  Receipt Date: 20221123
  Transmission Date: 20230113
  Serious: Yes (Hospitalization)
  Sender: FDA-Public Use
  Company Number: US-Merck Healthcare KGaA-9341025

PATIENT
  Sex: Male

DRUGS (1)
  1. REBIF [Suspect]
     Active Substance: INTERFERON BETA-1A
     Indication: Multiple sclerosis
     Dosage: PREFILLED SYRINGE
     Route: 058
     Dates: start: 20140505

REACTIONS (6)
  - Blood glucose decreased [Unknown]
  - Multiple sclerosis [Recovering/Resolving]
  - Fall [Unknown]
  - Nerve compression [Unknown]
  - Peripheral swelling [Unknown]
  - Depression [Unknown]
